FAERS Safety Report 14108385 (Version 1)
Quarter: 2017Q4

REPORT INFORMATION
  Report Type: Spontaneous
  Country: JP (occurrence: JP)
  Receive Date: 20171019
  Receipt Date: 20171019
  Transmission Date: 20180321
  Serious: Yes (Hospitalization)
  Sender: FDA-Public Use
  Company Number: JP-PFIZER INC-2017445478

PATIENT
  Age: 80 Year
  Sex: Male

DRUGS (15)
  1. VESICARE [Concomitant]
     Active Substance: SOLIFENACIN SUCCINATE
     Dosage: 5 MG, 1X/DAY(AFTER BREAKFAST)
  2. SPIRIVA [Concomitant]
     Active Substance: TIOTROPIUM BROMIDE MONOHYDRATE
     Dosage: 1 DF, 1X/DAY
     Route: 055
  3. ONBREZ [Concomitant]
     Active Substance: INDACATEROL
     Dosage: 1 DF, 1X/DAY
     Route: 055
  4. TEPRENONE [Concomitant]
     Active Substance: TEPRENONE
     Dosage: 50 MG, 3X/DAY (AFTER MEALS)
  5. MAINTATE [Concomitant]
     Active Substance: BISOPROLOL FUMARATE
     Dosage: 0.625 MG (AFTER BREAKFAST), 1X/DAY
  6. HARNAL [Concomitant]
     Active Substance: TAMSULOSIN HYDROCHLORIDE
     Dosage: 0.2 MG, 1X/DAY (AFTER BREAKFAST)
  7. URALYT /01779901/ [Concomitant]
     Dosage: 2 DF, 2X/DAY (AFTER BREAKFAST AND SUPPER)
  8. DAIOKANZOTO [Concomitant]
     Active Substance: LICORICE ROOT EXTRACT\RHUBARB
     Dosage: 2.5 G, 2X/DAY (BEFORE DINNER AND BEDTIME)
  9. LIPITOR [Suspect]
     Active Substance: ATORVASTATIN CALCIUM
     Dosage: 10 MG, DAILY
     Route: 048
  10. LANSOPRAZOLE. [Concomitant]
     Active Substance: LANSOPRAZOLE
     Dosage: 15 MG, 1X/DAY (AFTER BREAKFAST)
  11. NORVASC [Suspect]
     Active Substance: AMLODIPINE BESYLATE
     Dosage: 5 MG, DAILY
     Route: 048
  12. BAYASPIRIN [Concomitant]
     Active Substance: ASPIRIN
     Dosage: 100 MG, (AFTER BREAKFAST) 1X/DAY
  13. PLAVIX [Concomitant]
     Active Substance: CLOPIDOGREL BISULFATE
     Dosage: 75 MG (AFTER BREAKFAST), 1X/DAY
  14. AMBROXOL [Concomitant]
     Active Substance: AMBROXOL
     Dosage: 15 MG, 3X/DAY (AFTER MEALS)
  15. DIART [Concomitant]
     Active Substance: AZOSEMIDE
     Dosage: 30 MG, (AFTER BREAKFAST) 1X/DAY

REACTIONS (3)
  - Dehydration [Recovered/Resolved]
  - Nausea [Recovering/Resolving]
  - Decreased appetite [Recovering/Resolving]
